FAERS Safety Report 6037238-6 (Version None)
Quarter: 2009Q1

REPORT INFORMATION
  Report Type: 
  Country: None (occurrence: None)
  Receive Date: 20090114
  Receipt Date: 20090109
  Transmission Date: 20090719
  Serious: Yes (Hospitalization)
  Sender: FDA-Public Use
  Company Number: A0690190A

PATIENT
  Age: 63 Year
  Sex: Male
  Weight: 111.4 kg

DRUGS (5)
  1. AVANDIA [Suspect]
     Dosage: 8MG PER DAY
     Route: 048
     Dates: start: 20000101, end: 20070301
  2. METFORMIN HCL [Concomitant]
  3. DIABETA [Concomitant]
  4. EFFEXOR [Concomitant]
  5. GLYBURIDE [Concomitant]

REACTIONS (3)
  - ARRHYTHMIA [None]
  - CARDIAC DISORDER [None]
  - MYOCARDIAL INFARCTION [None]
